FAERS Safety Report 8222974-3 (Version None)
Quarter: 2012Q1

REPORT INFORMATION
  Report Type: 
  Country: None (occurrence: None)
  Receive Date: 20120320
  Receipt Date: 20120316
  Transmission Date: 20120608
  Serious: Yes (Death, Hospitalization)
  Sender: FDA-Public Use
  Company Number: US-B.I. PHARMACEUTICALS,INC./RIDGEFIELD-2012-BP-05107BP

PATIENT
  Age: 80 Year
  Sex: Male

DRUGS (4)
  1. UNKNOWN NON-STEROIDAL ANTI-INFLAMMATORY DRUG [Concomitant]
  2. PLAVIX [Concomitant]
  3. PRADAXA [Suspect]
     Dosage: 300 MG
     Route: 048
  4. ASPIRIN [Concomitant]

REACTIONS (3)
  - RENAL FAILURE [None]
  - GASTROINTESTINAL HAEMORRHAGE [None]
  - ACUTE MYOCARDIAL INFARCTION [None]
